FAERS Safety Report 16284816 (Version 3)
Quarter: 2019Q4

REPORT INFORMATION
  Report Type: Report from Study
  Country: US (occurrence: US)
  Receive Date: 20190508
  Receipt Date: 20191009
  Transmission Date: 20200122
  Serious: Yes (Hospitalization, Other)
  Sender: FDA-Public Use
  Company Number: US-BRISTOL-MYERS SQUIBB COMPANY-BMS-2019-044168

PATIENT
  Age: 48 Year
  Sex: Female
  Weight: 70.5 kg

DRUGS (2)
  1. METFORMIN HYDROCHLORIDE. [Suspect]
     Active Substance: METFORMIN HYDROCHLORIDE
     Indication: COLON CANCER
     Dosage: 1000 MILLIGRAM, BID
     Route: 048
     Dates: start: 20190307, end: 20190418
  2. NIVOLUMAB [Suspect]
     Active Substance: NIVOLUMAB
     Indication: COLON CANCER
     Dosage: 480 MILLIGRAM, QMO
     Route: 042
     Dates: start: 20190321, end: 20190418

REACTIONS (4)
  - Hydronephrosis [Unknown]
  - Vomiting [Recovered/Resolved]
  - Malignant neoplasm progression [Unknown]
  - Ureteritis [Unknown]

NARRATIVE: CASE EVENT DATE: 20190426
